FAERS Safety Report 18262033 (Version 1)
Quarter: 2020Q3

REPORT INFORMATION
  Report Type: Spontaneous
  Country: GT (occurrence: GT)
  Receive Date: 20200914
  Receipt Date: 20200914
  Transmission Date: 20201103
  Serious: Yes (Death, Hospitalization, Other)
  Sender: FDA-Public Use
  Company Number: NVSC2020GT250124

PATIENT
  Age: 10 Year
  Sex: Female

DRUGS (1)
  1. GLIVEC [Suspect]
     Active Substance: IMATINIB MESYLATE
     Indication: ACUTE LYMPHOCYTIC LEUKAEMIA
     Dosage: 600 MG (1 X 400MG + 2 X 100MG)
     Route: 065

REACTIONS (2)
  - Death [Fatal]
  - Leukaemia recurrent [Unknown]

NARRATIVE: CASE EVENT DATE: 20190915
